FAERS Safety Report 10003908 (Version 1)
Quarter: 2014Q1

REPORT INFORMATION
  Report Type: Spontaneous
  Country: US (occurrence: US)
  Receive Date: 20140312
  Receipt Date: 20140312
  Transmission Date: 20141002
  Serious: No
  Sender: FDA-Public Use
  Company Number: US-INCYTE CORPORATION-2014IN000171

PATIENT
  Age: 76 Year
  Sex: Female

DRUGS (6)
  1. JAKAFI [Suspect]
     Dosage: 15 MG, QD
     Route: 048
     Dates: start: 20130731, end: 20140116
  2. HYDROCHLOROTHIAZIDE [Concomitant]
  3. SYNTHROID [Concomitant]
  4. CALCIUM 600 + D [Concomitant]
  5. PRESERVISION LUTEIN [Concomitant]
  6. SPIRONOLACTONE [Concomitant]

REACTIONS (1)
  - Hospice care [Unknown]
